FAERS Safety Report 13686814 (Version 4)
Quarter: 2017Q4

REPORT INFORMATION
  Report Type: Spontaneous
  Country: JP (occurrence: JP)
  Receive Date: 20170623
  Receipt Date: 20171106
  Transmission Date: 20180320
  Serious: Yes (Other)
  Sender: FDA-Public Use
  Company Number: JP-PFIZER INC-2017268998

PATIENT
  Age: 68 Year
  Sex: Male
  Weight: 57.4 kg

DRUGS (12)
  1. LYRICA [Suspect]
     Active Substance: PREGABALIN
     Indication: NEURALGIA
     Dosage: 25 MG, 1X/DAY
     Route: 048
     Dates: start: 20170526, end: 20170626
  2. LYRICA [Suspect]
     Active Substance: PREGABALIN
     Indication: MYELITIS
  3. HUMALOG [Concomitant]
     Active Substance: INSULIN LISPRO
     Dosage: 10 IU, 3X/DAY
     Route: 058
     Dates: start: 20170510
  4. FUROSEMIDE. [Suspect]
     Active Substance: FUROSEMIDE
     Dosage: 40 MG, 1X/DAY
     Dates: start: 20170522, end: 20170724
  5. ASPARA POTASSIUM [Concomitant]
     Active Substance: POTASSIUM ASPARTATE
     Dosage: 600 MG, 3X/DAY
     Dates: start: 20170602, end: 20170807
  6. CALONAL [Concomitant]
     Active Substance: ACETAMINOPHEN
     Dosage: 600 MG, UNK
     Dates: start: 20170512
  7. ERYTHROMYCIN. [Concomitant]
     Active Substance: ERYTHROMYCIN
     Dosage: 100 MG, UNK
     Dates: start: 20170517, end: 20170728
  8. BROMHEXINE [Concomitant]
     Active Substance: BROMHEXINE
     Dosage: 4 MG, UNK
     Route: 042
     Dates: start: 20170502, end: 20170609
  9. LANSOPRAZOLE. [Concomitant]
     Active Substance: LANSOPRAZOLE
     Dosage: 15 MG, 1X/DAY
     Dates: start: 20170511, end: 20170629
  10. MINOMYCIN [Concomitant]
     Active Substance: MINOCYCLINE HYDROCHLORIDE
     Dosage: 100 MG, UNK
     Dates: start: 20170608
  11. HANP [Concomitant]
     Active Substance: CARPERITIDE
     Dosage: 2400 UG, UNK
     Route: 042
     Dates: start: 20170512, end: 20170614
  12. HANP [Concomitant]
     Active Substance: CARPERITIDE
     Dosage: 1200 UG, UNK
     Dates: start: 20170615, end: 20170616

REACTIONS (3)
  - Bradycardia [Recovered/Resolved]
  - Renal impairment [Recovered/Resolved]
  - Hypokalaemia [Not Recovered/Not Resolved]

NARRATIVE: CASE EVENT DATE: 20170606
